FAERS Safety Report 6082135-3 (Version None)
Quarter: 2009Q1

REPORT INFORMATION
  Report Type: 
  Country: None (occurrence: None)
  Receive Date: 20090126
  Receipt Date: 20080423
  Transmission Date: 20090719
  Serious: Yes (Hospitalization)
  Sender: FDA-Public Use
  Company Number: WAES 0804USA04970

PATIENT
  Sex: Female

DRUGS (1)
  1. INVANZ [Suspect]
     Indication: GASTROINTESTINAL INFECTION
     Dosage: IV
     Route: 042
     Dates: start: 20080419, end: 20080422

REACTIONS (1)
  - URTICARIA [None]
